FAERS Safety Report 17160917 (Version 2)
Quarter: 2020Q1

REPORT INFORMATION
  Report Type: Spontaneous
  Country: US (occurrence: US)
  Receive Date: 20191216
  Receipt Date: 20200108
  Transmission Date: 20200409
  Serious: No
  Sender: FDA-Public Use
  Company Number: NVSC2019US070567

PATIENT
  Sex: Female

DRUGS (1)
  1. TASIGNA [Suspect]
     Active Substance: NILOTINIB
     Indication: PATERNAL EXPOSURE DURING PREGNANCY
     Dosage: UNK
     Route: 050

REACTIONS (1)
  - Exposure via partner [Unknown]
